FAERS Safety Report 19234753 (Version 1)
Quarter: 2021Q2

REPORT INFORMATION
  Report Type: Spontaneous
  Country: GB (occurrence: GB)
  Receive Date: 20210509
  Receipt Date: 20210509
  Transmission Date: 20210717
  Serious: Yes (Other)
  Sender: FDA-Public Use
  Company Number: GB-JNJFOC-20210503377

PATIENT
  Age: 73 Year
  Sex: Male

DRUGS (8)
  1. ANGITIL [Concomitant]
     Dosage: 240 MG, QD
  2. ATORVASTATIN [Concomitant]
     Active Substance: ATORVASTATIN
     Dosage: 20 MG, HS
  3. FINASTERIDE. [Concomitant]
     Active Substance: FINASTERIDE
     Dosage: 5 MG, QD
  4. ALOGLIPTIN. [Concomitant]
     Active Substance: ALOGLIPTIN
     Dosage: 25 MG, QD
  5. GTN [Concomitant]
     Active Substance: NITROGLYCERIN
     Dosage: UNK
  6. FUROSEMIDE. [Concomitant]
     Active Substance: FUROSEMIDE
     Dosage: 40 MG, QD
  7. XARELTO [Suspect]
     Active Substance: RIVAROXABAN
     Indication: ASPIRIN-EXACERBATED RESPIRATORY DISEASE
     Dosage: 10 MG, QD
     Route: 048
     Dates: start: 20210308
  8. COCODAMOL [Concomitant]
     Active Substance: ACETAMINOPHEN\CODEINE PHOSPHATE
     Dosage: UNK

REACTIONS (2)
  - Cognitive disorder [Unknown]
  - Subarachnoid haemorrhage [Unknown]

NARRATIVE: CASE EVENT DATE: 20210411
